FAERS Safety Report 7104377-8 (Version None)
Quarter: 2010Q4

REPORT INFORMATION
  Report Type: 
  Country: None (occurrence: None)
  Receive Date: 20101115
  Receipt Date: 20101102
  Transmission Date: 20110411
  Serious: Yes (Hospitalization)
  Sender: FDA-Public Use
  Company Number: PHHY2010US69543

PATIENT
  Sex: Female
  Weight: 70.295 kg

DRUGS (16)
  1. RECLAST [Suspect]
     Indication: OSTEOPOROSIS
     Dosage: 5 MG/100 ML
     Dates: start: 20100915, end: 20100915
  2. NORVASC [Concomitant]
     Dosage: HALF TABLET QD
     Route: 048
  3. PLAVIX [Concomitant]
     Dosage: 1 TABLET ONCE A DAY
     Route: 048
  4. ASPIRIN [Concomitant]
     Dosage: 1 TABLET ONCE A DAY
     Route: 048
  5. METOPROLOL TARTRATE [Concomitant]
     Dosage: 25 MG, BID
  6. ZOCOR [Concomitant]
     Dosage: 1 TABLET AT NIGHT
     Route: 048
  7. VITAMIN D [Concomitant]
     Dosage: 1000 U, QD
  8. FISH OIL [Concomitant]
     Dosage: 1000 MG CAP BID
  9. NITROSTAT [Concomitant]
  10. LISINOPRIL [Concomitant]
     Dosage: 1 DF, QD
     Route: 048
  11. ASCORBIC ACID [Concomitant]
     Dosage: 1 DF, QD
     Route: 048
  12. HYDROCHLOROTHIAZIDE [Concomitant]
     Dosage: 1 CAPSULE QD
  13. CALCIUM WITH VITAMIN D [Concomitant]
     Dosage: QD
  14. MINERALS NOS [Concomitant]
  15. VITAMIN D [Concomitant]
     Dosage: 50000 IU, ONCE A WEEK
  16. HUMULIN 70/30 [Concomitant]
     Dosage: 15-30 UNITS AC TID

REACTIONS (17)
  - ABDOMINAL DISCOMFORT [None]
  - ABDOMINAL PAIN [None]
  - ARTHRALGIA [None]
  - BONE PAIN [None]
  - DIZZINESS [None]
  - DYSPNOEA [None]
  - GASTRITIS [None]
  - HAEMATEMESIS [None]
  - HEADACHE [None]
  - INFLUENZA LIKE ILLNESS [None]
  - MALAISE [None]
  - METAPLASIA [None]
  - MUSCULOSKELETAL PAIN [None]
  - NAUSEA [None]
  - OESOPHAGITIS [None]
  - PYREXIA [None]
  - VOMITING [None]
